FAERS Safety Report 8848359 (Version 1)
Quarter: 2012Q4

REPORT INFORMATION
  Report Type: 
  Country: US (occurrence: NL)
  Receive Date: 20121018
  Receipt Date: 20121018
  Transmission Date: 20130627
  Serious: Yes (Death, Other)
  Sender: FDA-Public Use
  Company Number: NL-ROXANE LABORATORIES, INC.-2012-EU-05182GD

PATIENT
  Age: 24 Year
  Sex: Female

DRUGS (2)
  1. MORPHINE [Suspect]
  2. IBOGAINE [Suspect]
     Indication: DRUG DETOXIFICATION
     Dosage: 29 mg/kg

REACTIONS (3)
  - Toxicity to various agents [Fatal]
  - Breath sounds [Unknown]
  - Rales [None]
